FAERS Safety Report 8916487 (Version 1)
Quarter: 2012Q4

REPORT INFORMATION
  Report Type: 
  Country: FR (occurrence: FR)
  Receive Date: 20121120
  Receipt Date: 20121120
  Transmission Date: 20130627
  Serious: Yes (Death, Life-Threatening, Hospitalization)
  Sender: FDA-Public Use
  Company Number: FR-ROCHE-900500619001

PATIENT
  Age: 87 Year
  Sex: Female

DRUGS (5)
  1. ROCEPHIN [Suspect]
     Indication: BRONCHOPNEUMOPATHY
     Route: 042
     Dates: start: 19900831, end: 19900904
  2. LASILIX [Concomitant]
     Indication: CARDIAC FAILURE
     Route: 048
  3. DIGOXINE [Concomitant]
     Indication: CARDIAC FAILURE
     Route: 048
  4. RISORDAN [Concomitant]
     Indication: CARDIAC FAILURE
     Route: 048
  5. KEFANDOL [Concomitant]
     Route: 042
     Dates: start: 19900801, end: 19900827

REACTIONS (4)
  - Agranulocytosis [Fatal]
  - Rash [Unknown]
  - Jaundice [Recovering/Resolving]
  - Hypovolaemic shock [Fatal]
